FAERS Safety Report 18123295 (Version 1)
Quarter: 2020Q3

REPORT INFORMATION
  Report Type: Spontaneous
  Country: CA (occurrence: CA)
  Receive Date: 20200807
  Receipt Date: 20200807
  Transmission Date: 20201103
  Serious: Yes (Hospitalization)
  Sender: FDA-Public Use
  Company Number: CA-ACCORD-194299

PATIENT
  Age: 83 Year
  Sex: Female

DRUGS (37)
  1. ESOMEPRAZOLE. [Concomitant]
     Active Substance: ESOMEPRAZOLE MAGNESIUM
     Dosage: NOT SPECIFIED
     Route: 065
  2. RETINOL [Concomitant]
     Active Substance: RETINOL
     Dosage: NOT SPECIFIED
     Route: 065
  3. APO?GABAPENTIN [Suspect]
     Active Substance: GABAPENTIN
     Indication: PRODUCT USED FOR UNKNOWN INDICATION
     Dosage: NOT SPECIFIED
     Route: 048
  4. ARAVA [Suspect]
     Active Substance: LEFLUNOMIDE
     Indication: PRODUCT USED FOR UNKNOWN INDICATION
     Route: 048
  5. MYOCHRYSINE [Suspect]
     Active Substance: GOLD SODIUM THIOMALATE
     Indication: RHEUMATOID ARTHRITIS
     Dosage: DOSAGE FORM: SOLUTION INTRAMUSCULAR
     Route: 030
  6. RIBOFLAVIN [Concomitant]
     Active Substance: RIBOFLAVIN
     Dosage: NOT SPECIFIED
  7. RISEDRONIC ACID [Concomitant]
     Active Substance: RISEDRONIC ACID
     Dosage: NOT SPECIFIED
     Route: 065
  8. THIAMINE. [Concomitant]
     Active Substance: THIAMINE
  9. TYLENOL [Concomitant]
     Active Substance: ACETAMINOPHEN
     Dosage: NOT SPECIFIED
     Route: 065
  10. OXYCODONE [Suspect]
     Active Substance: OXYCODONE
     Indication: PRODUCT USED FOR UNKNOWN INDICATION
     Route: 065
  11. SULFASALAZINE. [Suspect]
     Active Substance: SULFASALAZINE
     Indication: RHEUMATOID ARTHRITIS
     Dosage: NOT SPECIFIED
     Route: 048
  12. LOPERAMIDE [Concomitant]
     Active Substance: LOPERAMIDE
     Route: 065
  13. TRAZODONE [Concomitant]
     Active Substance: TRAZODONE HYDROCHLORIDE
  14. ORENCIA [Suspect]
     Active Substance: ABATACEPT
     Indication: RHEUMATOID ARTHRITIS
     Route: 042
  15. OXYCODONE HYDROCHLORIDE/PARACETAMOL [Concomitant]
     Active Substance: ACETAMINOPHEN\OXYCODONE HYDROCHLORIDE
     Route: 065
  16. DIPHENOXYLATE [Concomitant]
     Active Substance: DIPHENOXYLATE
  17. METHOTREXATE. [Suspect]
     Active Substance: METHOTREXATE
     Indication: RHEUMATOID ARTHRITIS
     Route: 058
  18. ACTEMRA [Suspect]
     Active Substance: TOCILIZUMAB
     Indication: RHEUMATOID ARTHRITIS
     Dosage: NOT SPECIFIED
     Route: 042
  19. IRON [Concomitant]
     Active Substance: IRON
     Dosage: NOT SPECIFIED
  20. THIAMINE. [Concomitant]
     Active Substance: THIAMINE
     Dosage: NOT SPECIFIED
  21. XELJANZ [Concomitant]
     Active Substance: TOFACITINIB CITRATE
  22. HYDROXYCHLOROQUINE [Suspect]
     Active Substance: HYDROXYCHLOROQUINE
     Indication: RHEUMATOID ARTHRITIS
     Route: 065
  23. OXYCODONE [Concomitant]
     Active Substance: OXYCODONE
     Dosage: NOT SPECIFIED
  24. CELEBREX [Suspect]
     Active Substance: CELECOXIB
     Indication: ARTHRITIS
     Route: 048
  25. ENBREL [Suspect]
     Active Substance: ETANERCEPT
     Indication: RHEUMATOID ARTHRITIS
     Route: 065
  26. ACLASTA [Concomitant]
     Active Substance: ZOLEDRONIC ACID
     Route: 042
  27. NORTRIPTYLINE [Concomitant]
     Active Substance: NORTRIPTYLINE
     Route: 065
  28. PERPHENAZINE. [Concomitant]
     Active Substance: PERPHENAZINE
     Dosage: NOT SPECIFIED
  29. PREDNISONE. [Concomitant]
     Active Substance: PREDNISONE
     Dosage: NOT SPECIFIED
  30. PYRIDOXINE [Concomitant]
     Active Substance: PYRIDOXINE
     Dosage: NOT SPECIFIED
     Route: 065
  31. ASCORBIC ACID. [Concomitant]
     Active Substance: ASCORBIC ACID
     Route: 065
  32. COLECALCIFEROL [Concomitant]
     Active Substance: CHOLECALCIFEROL
  33. GABAPENTIN. [Suspect]
     Active Substance: GABAPENTIN
     Indication: PRODUCT USED FOR UNKNOWN INDICATION
     Route: 048
  34. FENTANYL. [Suspect]
     Active Substance: FENTANYL
     Indication: PRODUCT USED FOR UNKNOWN INDICATION
     Dosage: NOT SPECIFIED
     Route: 065
  35. BIOTIN [Concomitant]
     Active Substance: BIOTIN
     Dosage: NOT SPECIFIED
  36. PANTOPRAZOLE [Concomitant]
     Active Substance: PANTOPRAZOLE
  37. RETINOL [Concomitant]
     Active Substance: RETINOL
     Route: 065

REACTIONS (26)
  - Blood magnesium increased [Unknown]
  - Drug hypersensitivity [Unknown]
  - Dry eye [Unknown]
  - Nausea [Unknown]
  - Blood creatinine increased [Unknown]
  - Cyst [Unknown]
  - Deafness neurosensory [Unknown]
  - Gastrointestinal disorder [Unknown]
  - Pleural fibrosis [Unknown]
  - Blood potassium increased [Unknown]
  - Drug intolerance [Unknown]
  - Hypersensitivity [Unknown]
  - Osteopenia [Unknown]
  - Pleural thickening [Unknown]
  - Presbyacusis [Unknown]
  - Skin lesion [Unknown]
  - Drug ineffective [Unknown]
  - Fatigue [Unknown]
  - Infection [Unknown]
  - Contraindicated product administered [Unknown]
  - Treatment failure [Unknown]
  - Epigastric discomfort [Unknown]
  - Osteoarthritis [Unknown]
  - Diarrhoea [Unknown]
  - Renal impairment [Unknown]
  - Sleep disorder [Unknown]
